FAERS Safety Report 10039295 (Version 2)
Quarter: 2014Q2

REPORT INFORMATION
  Report Type: Spontaneous
  Country: GB (occurrence: GB)
  Receive Date: 20140326
  Receipt Date: 20140505
  Transmission Date: 20141212
  Serious: Yes (Other)
  Sender: FDA-Public Use
  Company Number: GB-BRISTOL-MYERS SQUIBB COMPANY-20547006

PATIENT
  Sex: Female

DRUGS (8)
  1. APIXABAN [Suspect]
     Indication: HIP ARTHROPLASTY
  2. APIXABAN [Interacting]
     Indication: KNEE ARTHROPLASTY
  3. METFORMIN HCL [Interacting]
     Indication: DIABETES MELLITUS
  4. IBUPROFEN [Suspect]
  5. RAMIPRIL [Suspect]
  6. GENTAMICIN [Suspect]
     Indication: INFECTION
  7. FLUCLOXACILLIN [Suspect]
  8. NAPROXEN [Concomitant]
     Indication: INFECTION

REACTIONS (2)
  - Renal failure [Unknown]
  - Drug interaction [Unknown]
